FAERS Safety Report 6615258-8 (Version None)
Quarter: 2010Q1

REPORT INFORMATION
  Report Type: 
  Country: None (occurrence: None)
  Receive Date: 20100305
  Receipt Date: 20100223
  Transmission Date: 20100710
  Serious: Yes (Other)
  Sender: FDA-Public Use
  Company Number: US-MYLANLABS-2010S1002557

PATIENT
  Age: 24 Year
  Sex: Male
  Weight: 97.98 kg

DRUGS (6)
  1. CLONAZEPAM [Suspect]
     Indication: ANXIETY
     Route: 048
     Dates: start: 20100119
  2. CLONAZEPAM [Suspect]
     Indication: PANIC ATTACK
     Route: 048
     Dates: start: 20100119
  3. ASPIRIN [Concomitant]
     Route: 048
  4. DOXYCYCLINE HCL [Concomitant]
     Route: 048
  5. TRAMADOL HCL [Concomitant]
     Route: 048
  6. DARVOCET-N 100 [Concomitant]
     Route: 048

REACTIONS (5)
  - AGGRESSION [None]
  - DRUG INEFFECTIVE [None]
  - DRUG SCREEN NEGATIVE [None]
  - HYPERTENSION [None]
  - PANIC ATTACK [None]
